FAERS Safety Report 12569627 (Version 1)
Quarter: 2016Q3

REPORT INFORMATION
  Report Type: Spontaneous
  Country: US (occurrence: None)
  Receive Date: 20160718
  Receipt Date: 20160718
  Transmission Date: 20161109
  Serious: Yes (Hospitalization)
  Sender: FDA-Public Use
  Company Number: None

PATIENT
  Age: 16 Year
  Sex: Male
  Weight: 63.7 kg

DRUGS (7)
  1. AMMONIUM LACTATE. [Concomitant]
     Active Substance: AMMONIUM LACTATE
  2. CALCIUM 600+D [Concomitant]
     Active Substance: CALCIUM\VITAMIN D
  3. CABOZANTINIB [Suspect]
     Active Substance: CABOZANTINIB
     Route: 048
     Dates: start: 20160623
  4. MULTIVITAMIN [Concomitant]
     Active Substance: VITAMINS
  5. DIAZEPAM. [Concomitant]
     Active Substance: DIAZEPAM
  6. ZOFRAN [Concomitant]
     Active Substance: ONDANSETRON HYDROCHLORIDE
  7. CABOZANTINIB [Suspect]
     Active Substance: CABOZANTINIB
     Indication: NEUROFIBROMA
     Route: 048
     Dates: start: 20160414, end: 20160610

REACTIONS (6)
  - Cellulitis [None]
  - Culture positive [None]
  - Neurofibroma [None]
  - Abscess [None]
  - Bacterial infection [None]
  - Skin infection [None]

NARRATIVE: CASE EVENT DATE: 20160610
